FAERS Safety Report 9574973 (Version 1)
Quarter: 2013Q4

REPORT INFORMATION
  Report Type: Spontaneous
  Country: FR (occurrence: FR)
  Receive Date: 20131001
  Receipt Date: 20131001
  Transmission Date: 20140711
  Serious: Yes (Hospitalization)
  Sender: FDA-Public Use
  Company Number: FR-ASTRAZENECA-2013SE71547

PATIENT
  Age: 60 Year
  Sex: Male

DRUGS (8)
  1. INEXIUM [Suspect]
     Route: 048
  2. INEGY [Suspect]
     Indication: HYPERCHOLESTEROLAEMIA
     Route: 048
  3. PLAVIX [Suspect]
     Route: 048
     Dates: start: 200603
  4. RASILEZ [Suspect]
     Route: 048
  5. MECIR [Suspect]
     Route: 048
  6. NAFTIDROFURYL [Suspect]
     Route: 048
  7. ZANIDIP [Suspect]
     Route: 048
  8. ZANIDIP [Suspect]
     Route: 048
     Dates: start: 200708

REACTIONS (1)
  - Toxic skin eruption [Unknown]
